FAERS Safety Report 9265840 (Version 1)
Quarter: 2013Q2

REPORT INFORMATION
  Report Type: Spontaneous
  Country: MU (occurrence: MU)
  Receive Date: 20130501
  Receipt Date: 20130501
  Transmission Date: 20140414
  Serious: Yes (Other)
  Sender: FDA-Public Use
  Company Number: MU-GLAXOSMITHKLINE-B0888046A

PATIENT
  Age: 35 Year
  Sex: Female

DRUGS (1)
  1. IMIGRAN NASAL SPRAY [Suspect]
     Indication: MIGRAINE
     Route: 045
     Dates: start: 20130423, end: 20130423

REACTIONS (4)
  - Dyspnoea [Recovered/Resolved]
  - Muscle contractions involuntary [Recovered/Resolved]
  - Vertigo [Recovered/Resolved]
  - Palpitations [Recovered/Resolved]
